FAERS Safety Report 17143514 (Version 1)
Quarter: 2019Q4

REPORT INFORMATION
  Report Type: Spontaneous
  Country: SE (occurrence: SE)
  Receive Date: 20191212
  Receipt Date: 20191212
  Transmission Date: 20200122
  Serious: Yes (Hospitalization)
  Sender: FDA-Public Use
  Company Number: SE-TEVA-2019-SE-1148683

PATIENT
  Age: 48 Year
  Sex: Female

DRUGS (3)
  1. STESOLID [Suspect]
     Active Substance: DIAZEPAM
     Dosage: 20 STESOLID
     Route: 048
     Dates: start: 20181120, end: 20181120
  2. IMOVANE [Suspect]
     Active Substance: ZOPICLONE
     Dosage: 10 IMOVANE
     Route: 048
     Dates: start: 20181120, end: 20181120
  3. LERGIGAN (PROMETHAZINE HYDROCHLORIDE) [Suspect]
     Active Substance: PROMETHAZINE HYDROCHLORIDE
     Dosage: 20 LERGIGAN EV 5 MG
     Route: 048
     Dates: start: 20181120, end: 20181120

REACTIONS (4)
  - Tachycardia [Unknown]
  - Suicide attempt [Unknown]
  - Intentional overdose [Unknown]
  - Anxiety [Unknown]

NARRATIVE: CASE EVENT DATE: 20181120
